FAERS Safety Report 13655509 (Version 1)
Quarter: 2017Q2

REPORT INFORMATION
  Report Type: Spontaneous
  Country: US (occurrence: US)
  Receive Date: 20170615
  Receipt Date: 20170615
  Transmission Date: 20170830
  Serious: Yes (Other)
  Sender: FDA-Public Use
  Company Number: US-GLAXOSMITHKLINE-US2017091536

PATIENT
  Sex: Female

DRUGS (2)
  1. ALBUTEROL. [Concomitant]
     Active Substance: ALBUTEROL
  2. BREO ELLIPTA [Suspect]
     Active Substance: FLUTICASONE FUROATE\VILANTEROL TRIFENATATE
     Indication: CHRONIC OBSTRUCTIVE PULMONARY DISEASE
     Dosage: 1 PUFF(S), 1D
     Route: 055
     Dates: start: 20170530

REACTIONS (6)
  - Feeding disorder [Recovering/Resolving]
  - Oral fungal infection [Recovering/Resolving]
  - Sensation of foreign body [Recovering/Resolving]
  - Deafness unilateral [Recovering/Resolving]
  - Pharyngeal oedema [Recovering/Resolving]
  - Tonsillar hypertrophy [Recovering/Resolving]
